FAERS Safety Report 9936771 (Version 1)
Quarter: 2014Q1

REPORT INFORMATION
  Report Type: Spontaneous
  Country: US (occurrence: None)
  Receive Date: 20140109
  Receipt Date: 20140109
  Transmission Date: 20141002
  Serious: Yes (Other)
  Sender: FDA-Public Use
  Company Number: AUR-APL-2013-09408

PATIENT
  Age: 63 Year
  Sex: Female

DRUGS (6)
  1. LEVOFLOXACIN (LEVOFLOXACIN) [Suspect]
     Indication: PRODUCT USED FOR UNKNOWN INDICATION
  2. ASPIRINE [Suspect]
     Indication: PRODUCT USED FOR UNKNOWN INDICATION
  3. FLURAZEPAM [Suspect]
     Indication: PRODUCT USED FOR UNKNOWN INDICATION
  4. SULINDAC [Suspect]
     Indication: PRODUCT USED FOR UNKNOWN INDICATION
  5. TIZANIDINE (TIZANIDINE) [Suspect]
     Indication: PRODUCT USED FOR UNKNOWN INDICATION
  6. AMBIEN (ZOLPIDEM TARTRATE) [Suspect]
     Indication: PRODUCT USED FOR UNKNOWN INDICATION

REACTIONS (1)
  - Hepatic enzyme abnormal [None]
